FAERS Safety Report 25388200 (Version 3)
Quarter: 2025Q4

REPORT INFORMATION
  Report Type: Spontaneous
  Country: AU (occurrence: AU)
  Receive Date: 20250603
  Receipt Date: 20251030
  Transmission Date: 20260117
  Serious: Yes (Other)
  Sender: CELLTRION
  Company Number: AU-CELLTRION INC.-2025AU016561

PATIENT

DRUGS (3)
  1. INFLIXIMAB [Suspect]
     Active Substance: INFLIXIMAB
     Indication: Crohn^s disease
     Dosage: 120 MG, PRE FILLED PEN FORTNIGHTLY
     Dates: start: 20230918
  2. STEQEYMA [Suspect]
     Active Substance: USTEKINUMAB-STBA
     Indication: Crohn^s disease
     Dosage: 90MG/1ML PRE-FILLED SYRINGE, 1 SYRINGE (90MG), 8 WEEKLY
     Route: 058
     Dates: start: 2025
  3. STEQEYMA [Suspect]
     Active Substance: USTEKINUMAB-STBA
     Dosage: 4-WEEKLY DOSING
     Dates: start: 20251023

REACTIONS (2)
  - Intestinal resection [Unknown]
  - Intentional product use issue [Unknown]
